FAERS Safety Report 17859744 (Version 4)
Quarter: 2021Q1

REPORT INFORMATION
  Report Type: Spontaneous
  Country: US (occurrence: US)
  Receive Date: 20200604
  Receipt Date: 20210310
  Transmission Date: 20210419
  Serious: No
  Sender: FDA-Public Use
  Company Number: US-PFIZER INC-2020218366

PATIENT
  Age: 59 Year
  Sex: Female

DRUGS (1)
  1. IBRANCE [Suspect]
     Active Substance: PALBOCICLIB
     Indication: NEOPLASM MALIGNANT
     Dosage: UNK

REACTIONS (3)
  - Neoplasm progression [Unknown]
  - Fatigue [Unknown]
  - Feeling abnormal [Unknown]
